FAERS Safety Report 7769392-X (Version None)
Quarter: 2011Q3

REPORT INFORMATION
  Report Type: 
  Country: None (occurrence: None)
  Receive Date: 20110922
  Receipt Date: 20100729
  Transmission Date: 20111222
  Serious: Yes (Other)
  Sender: FDA-Public Use
  Company Number: US-ASTRAZENECA-2010SE35447

PATIENT
  Age: 672 Month
  Sex: Female
  Weight: 97.5 kg

DRUGS (4)
  1. SEROQUEL XR [Suspect]
     Route: 048
  2. CYMBALTA [Concomitant]
  3. SEROQUEL XR [Suspect]
     Indication: DEPRESSION
     Route: 048
     Dates: start: 20091001, end: 20100401
  4. HIGH BLOOD PRESSURE PILL [Concomitant]

REACTIONS (3)
  - SUICIDAL IDEATION [None]
  - DRUG DOSE OMISSION [None]
  - DEPRESSION [None]
